FAERS Safety Report 10661703 (Version 3)
Quarter: 2015Q1

REPORT INFORMATION
  Report Type: Spontaneous
  Country: US (occurrence: US)
  Receive Date: 20141218
  Receipt Date: 20150303
  Transmission Date: 20150720
  Serious: No
  Sender: FDA-Public Use
  Company Number: US-009507513-1412USA004813

PATIENT
  Age: 31 Year
  Sex: Female

DRUGS (1)
  1. NEXPLANON [Suspect]
     Active Substance: ETONOGESTREL
     Indication: CONTRACEPTION
     Dosage: 68 MG, ONCE EVERY 3 YEARS, IN LEFT ARM
     Route: 059
     Dates: start: 20140923, end: 20141128

REACTIONS (5)
  - Impaired healing [Unknown]
  - Application site discomfort [Unknown]
  - Implant site erythema [Unknown]
  - Device expulsion [Unknown]
  - Keloid scar [Unknown]

NARRATIVE: CASE EVENT DATE: 2014
